FAERS Safety Report 19783917 (Version 1)
Quarter: 2021Q3

REPORT INFORMATION
  Report Type: Spontaneous
  Country: US (occurrence: US)
  Receive Date: 20210901
  Receipt Date: 20210901
  Transmission Date: 20211014
  Serious: Yes (Hospitalization)
  Sender: FDA-Public Use
  Company Number: None

PATIENT
  Age: 31 Year
  Sex: Male

DRUGS (1)
  1. DIMETHYL FUMARATE DR [Suspect]
     Active Substance: DIMETHYL FUMARATE
     Route: 058
     Dates: start: 20210602

REACTIONS (3)
  - Product dose omission issue [None]
  - Device leakage [None]
  - Device malfunction [None]

NARRATIVE: CASE EVENT DATE: 20210623
